FAERS Safety Report 7957708-0 (Version None)
Quarter: 2011Q4

REPORT INFORMATION
  Report Type: 
  Country: None (occurrence: None)
  Receive Date: 20111205
  Receipt Date: 20111129
  Transmission Date: 20120403
  Serious: Yes (Other)
  Sender: FDA-Public Use
  Company Number: PHHY2011JP105345

PATIENT
  Age: 78 Year
  Sex: Female

DRUGS (1)
  1. COMTAN [Suspect]
     Dosage: 150 MG, DAILY
     Route: 048

REACTIONS (1)
  - ILEUS [None]
